FAERS Safety Report 21302196 (Version 2)
Quarter: 2022Q3

REPORT INFORMATION
  Report Type: Spontaneous
  Country: AU (occurrence: AU)
  Receive Date: 20220907
  Receipt Date: 20220913
  Transmission Date: 20221026
  Serious: Yes (Other)
  Sender: FDA-Public Use
  Company Number: AU-TASMAN PHARMA, INC.-2022TSM00115

PATIENT
  Age: 42 Year
  Sex: Male
  Weight: 94.5 kg

DRUGS (7)
  1. CLOZAPINE [Suspect]
     Active Substance: CLOZAPINE
     Indication: Schizophrenia
     Dosage: 500 MG AT NIGHT
     Dates: start: 20210209, end: 20210823
  2. CLOZAPINE [Suspect]
     Active Substance: CLOZAPINE
     Indication: Schizophrenia
     Dosage: 500 MG AT NIGHT
     Dates: start: 20210824, end: 20220404
  3. CLOZAPINE [Suspect]
     Active Substance: CLOZAPINE
     Indication: Schizophrenia
     Dosage: 500 MG AT NIGHT
     Dates: start: 20220405
  4. PANTOPRAZOLE [Concomitant]
     Active Substance: PANTOPRAZOLE
     Dosage: 40 MG AT NIGHT
  5. FE (IRON) REPLACEMENT [Concomitant]
  6. NIZATIDINE [Concomitant]
     Active Substance: NIZATIDINE
  7. GAVISCON [Concomitant]
     Active Substance: ALUMINUM HYDROXIDE\MAGNESIUM CARBONATE
     Dosage: UNK, AS NEEDED

REACTIONS (6)
  - QRS axis abnormal [Not Recovered/Not Resolved]
  - Aortic dilatation [Not Recovered/Not Resolved]
  - Serum ferritin decreased [Recovering/Resolving]
  - Sinus tachycardia [Not Recovered/Not Resolved]
  - Dyslipidaemia [Not Recovered/Not Resolved]
  - Hypertension [Not Recovered/Not Resolved]

NARRATIVE: CASE EVENT DATE: 20210406
